FAERS Safety Report 18212571 (Version 1)
Quarter: 2020Q3

REPORT INFORMATION
  Report Type: Spontaneous
  Country: US (occurrence: US)
  Receive Date: 20200829
  Receipt Date: 20200829
  Transmission Date: 20201103
  Serious: No
  Sender: FDA-Public Use
  Company Number: None

PATIENT
  Age: 62 Year
  Sex: Male

DRUGS (1)
  1. POMALYST [Suspect]
     Active Substance: POMALIDOMIDE
     Indication: PLASMA CELL MYELOMA
     Route: 048
     Dates: start: 20200212

REACTIONS (4)
  - Infection [None]
  - Condition aggravated [None]
  - Subcutaneous abscess [None]
  - Skin lesion [None]

NARRATIVE: CASE EVENT DATE: 20200821
